FAERS Safety Report 6444523-2 (Version None)
Quarter: 2009Q4

REPORT INFORMATION
  Report Type: 
  Country: None (occurrence: None)
  Receive Date: 20091118
  Receipt Date: 20091109
  Transmission Date: 20100525
  Serious: Yes (Death, Other)
  Sender: FDA-Public Use
  Company Number: JP-NOVOPROD-300001

PATIENT
  Age: 70 Year

DRUGS (3)
  1. NOVOSEVEN [Suspect]
     Indication: ACQUIRED HAEMOPHILIA
     Dosage: 6.0 MG
     Route: 042
     Dates: start: 20091025, end: 20091025
  2. NOVOSEVEN [Suspect]
     Dosage: 4.8 MG, QD
     Dates: start: 20091026, end: 20091026
  3. FRESH FROZEN PLASMA [Concomitant]
     Dosage: NOT REPORTED
     Dates: start: 20091025, end: 20091025

REACTIONS (4)
  - DRUG INEFFECTIVE [None]
  - HEPATIC FAILURE [None]
  - HEPATIC FUNCTION ABNORMAL [None]
  - RENAL IMPAIRMENT [None]
